FAERS Safety Report 10072374 (Version 5)
Quarter: 2014Q3

REPORT INFORMATION
  Report Type: Spontaneous
  Country: US (occurrence: US)
  Receive Date: 20140411
  Receipt Date: 20140717
  Transmission Date: 20150326
  Serious: Yes (Hospitalization)
  Sender: FDA-Public Use
  Company Number: US-BAYER-2014-053538

PATIENT
  Age: 44 Year
  Sex: Female
  Weight: 98.87 kg

DRUGS (2)
  1. DEPO-PROVERA [Concomitant]
     Active Substance: MEDROXYPROGESTERONE ACETATE
  2. MIRENA [Suspect]
     Active Substance: LEVONORGESTREL
     Indication: CONTRACEPTION
     Dosage: 20 MCG/24HR, CONT
     Route: 015
     Dates: start: 20061010, end: 20111104

REACTIONS (6)
  - Medical device pain [None]
  - Injury [None]
  - Post procedural discomfort [None]
  - Device dislocation [None]
  - Device misuse [None]
  - Procedural pain [None]

NARRATIVE: CASE EVENT DATE: 201111
